FAERS Safety Report 5192027-X (Version None)
Quarter: 2006Q4

REPORT INFORMATION
  Report Type: 
  Country: None (occurrence: None)
  Receive Date: 20061220
  Receipt Date: 20061211
  Transmission Date: 20070319
  Serious: Yes (Other)
  Sender: FDA-Public Use
  Company Number: 2006150690

PATIENT
  Sex: Female

DRUGS (1)
  1. LYRICA [Suspect]
     Indication: PAIN
     Dosage: ORAL
     Route: 048

REACTIONS (5)
  - COGNITIVE DISORDER [None]
  - DEPERSONALISATION [None]
  - DRUG WITHDRAWAL SYNDROME [None]
  - INJURY [None]
  - MEMORY IMPAIRMENT [None]
